FAERS Safety Report 7020293-4 (Version None)
Quarter: 2010Q3

REPORT INFORMATION
  Report Type: 
  Country: None (occurrence: None)
  Receive Date: 20100929
  Receipt Date: 20100916
  Transmission Date: 20110219
  Serious: Yes (Hospitalization, Other)
  Sender: FDA-Public Use
  Company Number: US-ELI_LILLY_AND_COMPANY-US201009004992

PATIENT
  Sex: Female

DRUGS (4)
  1. CYMBALTA [Suspect]
     Indication: PAIN
     Dosage: 120 MG, UNK
  2. WELLBUTRIN [Concomitant]
     Indication: DEPRESSION
  3. EYE DROPS [Concomitant]
  4. GENRX FLUOXETINE [Concomitant]

REACTIONS (2)
  - FRACTURE NONUNION [None]
  - POST PROCEDURAL COMPLICATION [None]
